FAERS Safety Report 7455775-4 (Version None)
Quarter: 2011Q2

REPORT INFORMATION
  Report Type: 
  Country: None (occurrence: None)
  Receive Date: 20110503
  Receipt Date: 20110427
  Transmission Date: 20111010
  Serious: Yes (Other)
  Sender: FDA-Public Use
  Company Number: FR-PFIZER INC-2011090287

PATIENT
  Age: 60 Year
  Sex: Male

DRUGS (1)
  1. LYRICA [Suspect]
     Indication: NEURALGIA
     Dosage: 600 MG PER DAY
     Route: 048
     Dates: start: 20090101, end: 20090701

REACTIONS (3)
  - SOMATISATION DISORDER [None]
  - MOOD SWINGS [None]
  - DYSTHYMIC DISORDER [None]
